FAERS Safety Report 6814885-2 (Version None)
Quarter: 2010Q3

REPORT INFORMATION
  Report Type: 
  Country: None (occurrence: None)
  Receive Date: 20100702
  Receipt Date: 20100625
  Transmission Date: 20110219
  Serious: No
  Sender: FDA-Public Use
  Company Number: GB-ROCHE-702108

PATIENT
  Sex: Male
  Weight: 100.1 kg

DRUGS (5)
  1. PEGASYS [Suspect]
     Indication: HEPATITIS C
     Route: 058
  2. PEGASYS [Suspect]
     Route: 058
     Dates: start: 20100414
  3. COPEGUS [Suspect]
     Indication: HEPATITIS C
     Route: 048
  4. COPEGUS [Suspect]
     Route: 048
     Dates: start: 20100414
  5. METHADONE [Concomitant]
     Route: 048

REACTIONS (2)
  - MUSCULOSKELETAL PAIN [None]
  - VIITH NERVE PARALYSIS [None]
